FAERS Safety Report 8153784-3 (Version None)
Quarter: 2012Q1

REPORT INFORMATION
  Report Type: 
  Country: None (occurrence: None)
  Receive Date: 20120221
  Receipt Date: 20120214
  Transmission Date: 20120608
  Serious: Yes (Hospitalization)
  Sender: FDA-Public Use
  Company Number: JP-GLAXOSMITHKLINE-B0774554A

PATIENT
  Sex: Female

DRUGS (8)
  1. LAMICTAL [Suspect]
     Dosage: 25MG PER DAY
     Route: 048
     Dates: start: 20110920, end: 20111010
  2. LAMICTAL [Suspect]
     Dosage: 100MG PER DAY
     Route: 048
     Dates: start: 20111108, end: 20111121
  3. LAMICTAL [Suspect]
     Dosage: 150MG PER DAY
     Route: 048
     Dates: start: 20111129, end: 20111213
  4. VALPROATE SODIUM [Concomitant]
     Dosage: 800MG PER DAY
     Route: 048
  5. LAMICTAL [Suspect]
     Dosage: 50MG PER DAY
     Route: 048
     Dates: start: 20111011, end: 20111024
  6. LAMICTAL [Suspect]
     Dosage: 125MG PER DAY
     Route: 048
     Dates: start: 20111122, end: 20111128
  7. LAMICTAL [Suspect]
     Dosage: 75MG PER DAY
     Route: 048
     Dates: start: 20111025, end: 20111107
  8. LAMICTAL [Suspect]
     Dosage: 25MG ALTERNATE DAYS
     Route: 048
     Dates: start: 20110906, end: 20110919

REACTIONS (12)
  - OROPHARYNGEAL PAIN [None]
  - PAIN IN EXTREMITY [None]
  - DRUG RASH WITH EOSINOPHILIA AND SYSTEMIC SYMPTOMS [None]
  - RASH [None]
  - SKIN DISORDER [None]
  - PANCREATIC INSUFFICIENCY [None]
  - HEPATIC FUNCTION ABNORMAL [None]
  - ERYTHEMA [None]
  - RENAL IMPAIRMENT [None]
  - PYREXIA [None]
  - BACK PAIN [None]
  - ARTHRALGIA [None]
